FAERS Safety Report 9986103 (Version 1)
Quarter: 2014Q1

REPORT INFORMATION
  Report Type: Report from Study
  Country: US (occurrence: US)
  Receive Date: 20140307
  Receipt Date: 20140307
  Transmission Date: 20141002
  Serious: No
  Sender: FDA-Public Use
  Company Number: US-ABBVIE-13P-163-1090349-00

PATIENT
  Age: 18 Year
  Sex: Female

DRUGS (5)
  1. HUMIRA [Suspect]
     Indication: JUVENILE IDIOPATHIC ARTHRITIS
     Dates: start: 20130420
  2. MELOXICAM [Concomitant]
     Indication: RHEUMATOID ARTHRITIS
  3. ZYRTEC [Concomitant]
     Indication: HYPERSENSITIVITY
  4. PRILOSEC [Concomitant]
     Indication: GASTROOESOPHAGEAL REFLUX PROPHYLAXIS
  5. PRILOSEC [Concomitant]
     Indication: DYSPEPSIA

REACTIONS (1)
  - Urine odour abnormal [Not Recovered/Not Resolved]
